FAERS Safety Report 5260487-1 (Version None)
Quarter: 2007Q1

REPORT INFORMATION
  Report Type: 
  Country: None (occurrence: None)
  Receive Date: 20070309
  Receipt Date: 20061003
  Transmission Date: 20070707
  Serious: No
  Sender: FDA-Public Use
  Company Number: US-GLAXOSMITHKLINE-A0622086A

PATIENT

DRUGS (2)
  1. NICORETTE (MINT) [Suspect]
     Dates: end: 20061001
  2. COMMIT [Suspect]

REACTIONS (2)
  - DYSGEUSIA [None]
  - INTENTIONAL DRUG MISUSE [None]
